FAERS Safety Report 5706881-3 (Version None)
Quarter: 2008Q2

REPORT INFORMATION
  Report Type: 
  Country: None (occurrence: None)
  Receive Date: 20080416
  Receipt Date: 20080404
  Transmission Date: 20081010
  Serious: Yes (Hospitalization)
  Sender: FDA-Public Use
  Company Number: US-ELI_LILLY_AND_COMPANY-US200804001452

PATIENT
  Sex: Female

DRUGS (4)
  1. HUMALOG MIX 75/25 [Suspect]
     Indication: DIABETES MELLITUS
     Dates: start: 19990101, end: 20070901
  2. HUMALOG [Suspect]
     Indication: DIABETES MELLITUS
     Dates: start: 20070901
  3. LANTUS [Concomitant]
     Dates: start: 20070901
  4. VITAMIN B-12 [Concomitant]
     Dosage: UNK, MONTHLY (1/M)

REACTIONS (11)
  - AMNESIA [None]
  - ANOREXIA [None]
  - BLOOD GLUCOSE DECREASED [None]
  - COUGH [None]
  - DIZZINESS [None]
  - FEELING ABNORMAL [None]
  - INFLUENZA [None]
  - INSOMNIA [None]
  - MALAISE [None]
  - PRODUCTIVE COUGH [None]
  - PYREXIA [None]
